FAERS Safety Report 11347741 (Version 1)
Quarter: 2015Q3

REPORT INFORMATION
  Report Type: Spontaneous
  Country: US (occurrence: US)
  Receive Date: 20150803
  Receipt Date: 20150803
  Transmission Date: 20151125
  Serious: No
  Sender: FDA-Public Use
  Company Number: US-ELI_LILLY_AND_COMPANY-US201109006776

PATIENT
  Sex: Female

DRUGS (6)
  1. ZYPREXA [Suspect]
     Active Substance: OLANZAPINE
     Dosage: 5 MG, QD
  2. ZYPREXA [Suspect]
     Active Substance: OLANZAPINE
     Indication: BIPOLAR DISORDER
     Dosage: 2.5 MG, QD
  3. ZYPREXA [Suspect]
     Active Substance: OLANZAPINE
     Dosage: 10 MG, QD
  4. ZYPREXA [Suspect]
     Active Substance: OLANZAPINE
     Dosage: 2.5 MG, QD
  5. DEPAKOTE [Concomitant]
     Active Substance: DIVALPROEX SODIUM
  6. INSULIN [Concomitant]
     Active Substance: INSULIN NOS

REACTIONS (10)
  - Sunburn [Unknown]
  - Sensitisation [Unknown]
  - Peripheral swelling [Unknown]
  - Rash [Unknown]
  - Blood glucose increased [Unknown]
  - Rosacea [Unknown]
  - Clumsiness [Unknown]
  - Dry mouth [Unknown]
  - Feeling abnormal [Unknown]
  - Hallucination [Unknown]
